FAERS Safety Report 6446123-7 (Version None)
Quarter: 2009Q4

REPORT INFORMATION
  Report Type: 
  Country: None (occurrence: None)
  Receive Date: 20091119
  Receipt Date: 20091019
  Transmission Date: 20100525
  Serious: No
  Sender: FDA-Public Use
  Company Number: US-BAYER-200936746NA

PATIENT
  Age: 42 Year
  Sex: Female
  Weight: 64 kg

DRUGS (4)
  1. YAZ [Suspect]
     Indication: CONTRACEPTION
     Route: 048
     Dates: start: 20081001
  2. TOPICAL ANTI FUNGAL [Concomitant]
     Indication: ONYCHOMYCOSIS
  3. SYNTHROID [Concomitant]
     Indication: THYROID DISORDER
  4. ALLERGY MEDICINE [Concomitant]

REACTIONS (1)
  - MENSTRUATION DELAYED [None]
